FAERS Safety Report 6337186-8 (Version None)
Quarter: 2009Q3

REPORT INFORMATION
  Report Type: 
  Country: None (occurrence: None)
  Receive Date: 20090819
  Receipt Date: 20090805
  Transmission Date: 20100115
  Serious: Yes (Other)
  Sender: FDA-Public Use
  Company Number: THYM-1001139

PATIENT
  Age: 25 Year
  Sex: Female
  Weight: 75 kg

DRUGS (12)
  1. THYMOGLOBULIN [Suspect]
     Indication: APLASTIC ANAEMIA
     Dosage: 280 MG, QD, INTRAVENOUS
     Route: 042
     Dates: start: 20090324, end: 20090328
  2. CYCLOSPORINE [Suspect]
     Indication: APLASTIC ANAEMIA
     Dosage: 175 MG, BID, ORAL
     Route: 048
     Dates: start: 20090324
  3. G-CSF (GRANULOCYTE COLONY STIMULATING FACTOR) [Concomitant]
  4. VANCOMYCIN [Concomitant]
  5. PIPERACILLIN SODIUM AND TAZOBACTAM SODIUM [Concomitant]
  6. AMLODIPINE [Concomitant]
  7. L-THYROXINE (LEVOTHYROXINE) [Concomitant]
  8. ACYCLOVIR [Concomitant]
  9. CIPROFLOXACIN (CIPROFLOXACIN) [Concomitant]
  10. NEOMYCIN (NEOMYCIN) [Concomitant]
  11. PENTAMIDINE (PENTAMIDINE) [Concomitant]
  12. NORETHINDRONE [Concomitant]

REACTIONS (2)
  - HEPATIC STEATOSIS [None]
  - HYPERBILIRUBINAEMIA [None]
